FAERS Safety Report 5009482-8 (Version None)
Quarter: 2006Q2

REPORT INFORMATION
  Report Type: 
  Country: None (occurrence: None)
  Receive Date: 20060522
  Receipt Date: 20060509
  Transmission Date: 20061013
  Serious: Yes (Hospitalization)
  Sender: FDA-Public Use
  Company Number: 2006063891

PATIENT
  Age: 56 Year
  Sex: Male

DRUGS (1)
  1. CELEBREX [Suspect]
     Indication: ARTHRITIS
     Dosage: (2 IN 1 D),
     Dates: start: 20020101

REACTIONS (4)
  - ATRIOVENTRICULAR BLOCK [None]
  - CHEST PAIN [None]
  - MYOCARDIAL INFARCTION [None]
  - SURGERY [None]
